FAERS Safety Report 17021751 (Version 1)
Quarter: 2019Q4

REPORT INFORMATION
  Report Type: Spontaneous
  Country: US (occurrence: US)
  Receive Date: 20191111
  Receipt Date: 20191111
  Transmission Date: 20200122
  Serious: Yes (Hospitalization)
  Sender: FDA-Public Use
  Company Number: None

PATIENT
  Age: 63 Year
  Sex: Female

DRUGS (3)
  1. FOLIC ACID TAB 1MG [Concomitant]
     Dates: start: 20190912
  2. CAPECITABINE. [Suspect]
     Active Substance: CAPECITABINE
     Route: 048
  3. FOLIC ACID TAB 1000MCG [Concomitant]
     Dates: start: 20181119

REACTIONS (3)
  - Paraesthesia [None]
  - Therapy cessation [None]
  - Fatigue [None]

NARRATIVE: CASE EVENT DATE: 20191105
